FAERS Safety Report 23529891 (Version 1)
Quarter: 2024Q1

REPORT INFORMATION
  Report Type: Other
  Country: US (occurrence: None)
  Receive Date: 20240216
  Receipt Date: 20240216
  Transmission Date: 20240409
  Serious: Yes (Death)
  Sender: FDA-Public Use
  Company Number: US-ROCHE-3509582

PATIENT
  Age: 76 Year
  Sex: Male

DRUGS (1)
  1. OCREVUS [Suspect]
     Active Substance: OCRELIZUMAB
     Indication: Relapsing multiple sclerosis
     Dosage: 300 MG DAY 1 THEN REPEAT IN 2 WEEKS THEN 600 MG EVERY 6 MONTHS
     Route: 042

REACTIONS (1)
  - Pneumonia [Fatal]
